FAERS Safety Report 8412859-1 (Version None)
Quarter: 2012Q2

REPORT INFORMATION
  Report Type: 
  Country: None (occurrence: None)
  Receive Date: 20120531
  Receipt Date: 20120531
  Transmission Date: 20120825
  Serious: No
  Sender: FDA-Public Use
  Company Number: None

PATIENT
  Sex: Male
  Weight: 97.977 kg

DRUGS (2)
  1. CELEXA [Suspect]
     Indication: MAJOR DEPRESSION
     Dosage: 40MG DAILY PO
     Route: 048
     Dates: start: 20100830, end: 20120529
  2. CELEXA [Suspect]
     Indication: POST-TRAUMATIC STRESS DISORDER
     Dosage: 40MG DAILY PO
     Route: 048
     Dates: start: 20100830, end: 20120529

REACTIONS (4)
  - CARDIAC FAILURE CONGESTIVE [None]
  - BRADYARRHYTHMIA [None]
  - ELECTROCARDIOGRAM QT PROLONGED [None]
  - ELECTROCARDIOGRAM ST-T CHANGE [None]
